FAERS Safety Report 9881607 (Version 1)
Quarter: 2014Q1

REPORT INFORMATION
  Report Type: Spontaneous
  Country: US (occurrence: US)
  Receive Date: 20140207
  Receipt Date: 20140207
  Transmission Date: 20141002
  Serious: Yes (Other)
  Sender: FDA-Public Use
  Company Number: US-ROCHE-1341169

PATIENT
  Age: 81 Year
  Sex: Male

DRUGS (9)
  1. ERIVEDGE [Suspect]
     Indication: BASAL CELL CARCINOMA
     Route: 048
     Dates: start: 20131210, end: 20140127
  2. CARVEDILOL [Concomitant]
     Route: 065
  3. VICODIN [Concomitant]
  4. CILOSTAZOL [Concomitant]
  5. GABAPENTIN [Concomitant]
  6. MOTRIN [Concomitant]
  7. ASPIRIN [Concomitant]
  8. ATORVASTATIN [Concomitant]
  9. FENOFIBRATE [Concomitant]

REACTIONS (4)
  - Squamous cell carcinoma [Not Recovered/Not Resolved]
  - Drug ineffective [Unknown]
  - Muscle spasms [Recovered/Resolved]
  - Diarrhoea [Recovered/Resolved]
